FAERS Safety Report 17356164 (Version 1)
Quarter: 2020Q1

REPORT INFORMATION
  Report Type: Spontaneous
  Country: US (occurrence: US)
  Receive Date: 20200131
  Receipt Date: 20200131
  Transmission Date: 20200409
  Serious: No
  Sender: FDA-Public Use
  Company Number: NVSC2020US016932

PATIENT
  Age: 51 Year
  Sex: Female

DRUGS (2)
  1. OFLOXACIN. [Concomitant]
     Active Substance: OFLOXACIN
     Indication: PRODUCT USED FOR UNKNOWN INDICATION
     Dosage: UNK (0.3%)
     Route: 065
  2. BIMATOPROST. [Suspect]
     Active Substance: BIMATOPROST
     Indication: PRODUCT USED FOR UNKNOWN INDICATION
     Dosage: UNK (0.03%)
     Route: 047

REACTIONS (5)
  - Vision blurred [Recovered/Resolved]
  - Accidental exposure to product [Unknown]
  - Eye irritation [Recovered/Resolved]
  - Hordeolum [Recovered/Resolved]
  - Muscle twitching [Recovered/Resolved]
